FAERS Safety Report 17280047 (Version 1)
Quarter: 2020Q1

REPORT INFORMATION
  Report Type: Report from Study
  Country: ES (occurrence: ES)
  Receive Date: 20200117
  Receipt Date: 20200117
  Transmission Date: 20200409
  Serious: Yes (Hospitalization)
  Sender: FDA-Public Use
  Company Number: ES-TEVA-2020-ES-1167986

PATIENT
  Age: 69 Year

DRUGS (6)
  1. SIMVASTATINA (1023A) [Concomitant]
     Active Substance: SIMVASTATIN
     Dosage: 40 MG
     Route: 048
     Dates: start: 201706, end: 20190717
  2. ENOXAPARINA SODICA (2482SO) [Interacting]
     Active Substance: ENOXAPARIN SODIUM
     Indication: PULMONARY EMBOLISM
     Dosage: 200 MG
     Route: 058
     Dates: start: 20190630, end: 20190717
  3. ALENDRONICO ACIDO (2781A) [Concomitant]
     Dosage: 70 MG
     Route: 048
     Dates: start: 201209, end: 20190717
  4. SIMVASTATINA (1023A) [Suspect]
     Active Substance: SIMVASTATIN
     Indication: DYSLIPIDAEMIA
     Dosage: 20 MG
     Route: 048
     Dates: start: 201711
  5. WARFARINA SODICA (3221SO) [Interacting]
     Active Substance: WARFARIN SODIUM
     Indication: PULMONARY EMBOLISM
     Dosage: 1 DOSAGE FORMS
     Route: 048
     Dates: start: 20190711, end: 20190717
  6. METFORMINA (1359A) [Concomitant]
     Active Substance: METFORMIN HYDROCHLORIDE
     Indication: DIABETES MELLITUS
     Dosage: 850 MG
     Route: 048
     Dates: start: 201711, end: 20190717

REACTIONS (2)
  - Drug interaction [Unknown]
  - Haematoma muscle [Recovered/Resolved]

NARRATIVE: CASE EVENT DATE: 20190715
